FAERS Safety Report 12210314 (Version 1)
Quarter: 2016Q1

REPORT INFORMATION
  Report Type: Spontaneous
  Country: US (occurrence: US)
  Receive Date: 20160325
  Receipt Date: 20160325
  Transmission Date: 20160526
  Serious: Yes (Other)
  Sender: FDA-Public Use
  Company Number: US-MDT-ADR-2016-00006

PATIENT
  Age: 58 Year
  Sex: Female

DRUGS (2)
  1. MORPHINE [Suspect]
     Active Substance: MORPHINE
     Dosage: 4.991 MG/DAY
     Route: 037
  2. BACLOFEN, UNKNOWN [Suspect]
     Active Substance: BACLOFEN
     Indication: PAIN
     Dosage: 0.4991MG/DAY
     Route: 037

REACTIONS (4)
  - C-reactive protein increased [Recovered/Resolved]
  - Nausea [Recovered/Resolved]
  - Incision site pain [Recovered/Resolved]
  - Incision site erythema [Recovered/Resolved]

NARRATIVE: CASE EVENT DATE: 20151223
